FAERS Safety Report 22882771 (Version 5)
Quarter: 2024Q1

REPORT INFORMATION
  Report Type: Spontaneous
  Country: US (occurrence: US)
  Receive Date: 20230830
  Receipt Date: 20240215
  Transmission Date: 20240410
  Serious: No
  Sender: FDA-Public Use
  Company Number: US-PFIZER INC-PV202300145123

PATIENT
  Age: 8 Year
  Sex: Male
  Weight: 41.5 kg

DRUGS (2)
  1. GENOTROPIN [Suspect]
     Active Substance: SOMATROPIN
     Dosage: 1.4MG PER DAY, 6 DAY PER WEEK
  2. GENOTROPIN [Suspect]
     Active Substance: SOMATROPIN
     Dosage: 1.0MG ALTERNATING WITH 1.2MG, ALTERNATE DAY FOR A DAILY AVERAGE OF 1.1MG 6XWEEK
     Route: 058
     Dates: start: 20230208

REACTIONS (4)
  - Wrong technique in device usage process [Unknown]
  - Device physical property issue [Unknown]
  - Poor quality device used [Unknown]
  - Device leakage [Unknown]

NARRATIVE: CASE EVENT DATE: 20230101
